FAERS Safety Report 9052502 (Version 1)
Quarter: 2013Q1

REPORT INFORMATION
  Report Type: Spontaneous
  Country: HN (occurrence: HN)
  Receive Date: 20130207
  Receipt Date: 20130207
  Transmission Date: 20140127
  Serious: Yes (Death, Hospitalization, Other)
  Sender: FDA-Public Use
  Company Number: PHHY2013HN011452

PATIENT
  Age: 59 Year
  Sex: Male

DRUGS (1)
  1. CO-DIOVAN [Suspect]
     Indication: HYPERTENSION
     Dosage: 1 DF (320MG VALS/25MG HCT), QD
     Route: 048

REACTIONS (6)
  - Death [Fatal]
  - Aneurysm ruptured [Unknown]
  - Cerebral haemorrhage [Unknown]
  - Altered state of consciousness [Unknown]
  - Headache [Unknown]
  - Electroencephalogram abnormal [Unknown]
